FAERS Safety Report 20147174 (Version 1)
Quarter: 2021Q4

REPORT INFORMATION
  Report Type: Spontaneous
  Country: US (occurrence: US)
  Receive Date: 20211203
  Receipt Date: 20211203
  Transmission Date: 20220303
  Serious: No
  Sender: FDA-Public Use
  Company Number: US-SA-SAC20211129000679

PATIENT
  Sex: Male

DRUGS (6)
  1. DUPIXENT [Suspect]
     Active Substance: DUPILUMAB
     Indication: Dermatitis atopic
     Dosage: 300 MG, QOW
     Route: 058
  2. HUMIRA [Concomitant]
     Active Substance: ADALIMUMAB
     Indication: Rheumatoid arthritis
     Dosage: 300MG
  3. BETA CAROTENE [Concomitant]
     Active Substance: BETA CAROTENE
     Dosage: 10000 UNIT
  4. FISH OIL [Concomitant]
     Active Substance: FISH OIL
     Dosage: 90 MG; 60 MG-90MG CAPSULE
  5. VITAMIN C [Concomitant]
     Active Substance: ASCORBIC ACID
     Dosage: 90MG
  6. IRON [Concomitant]
     Active Substance: IRON

REACTIONS (7)
  - Erythema [Unknown]
  - Dry skin [Unknown]
  - Skin discolouration [Unknown]
  - Lacrimation increased [Unknown]
  - Injection site swelling [Unknown]
  - Rash macular [Unknown]
  - Dry eye [Unknown]
